FAERS Safety Report 10310633 (Version 1)
Quarter: 2014Q3

REPORT INFORMATION
  Report Type: Spontaneous
  Country: US (occurrence: None)
  Receive Date: 20140716
  Receipt Date: 20140716
  Transmission Date: 20150326
  Serious: Yes (Hospitalization)
  Sender: FDA-Public Use
  Company Number: None

PATIENT
  Age: 37 Year
  Sex: Female

DRUGS (1)
  1. ACTHAR [Suspect]
     Active Substance: CORTICOTROPIN
     Indication: NEPHRITIS
     Route: 058
     Dates: start: 20140613, end: 20130616

REACTIONS (3)
  - Haematochezia [None]
  - Swelling face [None]
  - Facial pain [None]

NARRATIVE: CASE EVENT DATE: 20140614
